FAERS Safety Report 8881737 (Version 2)
Quarter: 2012Q4

REPORT INFORMATION
  Report Type: 
  Country: JP (occurrence: JP)
  Receive Date: 20121101
  Receipt Date: 20121129
  Transmission Date: 20130627
  Serious: Yes (Other)
  Sender: FDA-Public Use
  Company Number: JP-ELI_LILLY_AND_COMPANY-JP201210007615

PATIENT
  Age: 82 Year
  Sex: Female

DRUGS (2)
  1. EVISTA [Suspect]
     Route: 048
  2. FORTEO [Suspect]
     Indication: OSTEOPOROSIS
     Dosage: UNK
     Route: 058

REACTIONS (3)
  - Fall [Recovered/Resolved]
  - Fracture [Unknown]
  - Off label use [Unknown]
